FAERS Safety Report 7819269-6 (Version None)
Quarter: 2011Q4

REPORT INFORMATION
  Report Type: 
  Country: None (occurrence: None)
  Receive Date: 20111018
  Receipt Date: 20101112
  Transmission Date: 20120403
  Serious: No
  Sender: FDA-Public Use
  Company Number: US-ASTRAZENECA-2010SE54178

PATIENT
  Sex: Female
  Weight: 81.6 kg

DRUGS (4)
  1. OMEPRAZOLE [Concomitant]
  2. SYMBICORT [Suspect]
     Indication: ASTHMA
     Dosage: 160/4.5 MCG, 2 PUFFS BID
     Route: 055
  3. ZYRTEC [Concomitant]
  4. NASONEX [Concomitant]

REACTIONS (1)
  - ORAL INFECTION [None]
